FAERS Safety Report 11504014 (Version 1)
Quarter: 2015Q3

REPORT INFORMATION
  Report Type: Report from Study
  Country: AU (occurrence: AU)
  Receive Date: 20150914
  Receipt Date: 20150914
  Transmission Date: 20151125
  Serious: No
  Sender: FDA-Public Use
  Company Number: AU-UCBSA-079507

PATIENT
  Age: 50 Year
  Sex: Male
  Weight: 59.7 kg

DRUGS (4)
  1. SALPRAZ [Concomitant]
     Indication: GASTROOESOPHAGEAL REFLUX DISEASE
  2. SALPRAZ [Concomitant]
     Indication: DYSPEPSIA
     Dosage: 40 MG, ONCE DAILY (QD)
     Route: 048
     Dates: start: 20121010
  3. BLACKMORES MULTI-VITAMIN [Concomitant]
     Indication: VITAMIN SUPPLEMENTATION
     Dosage: 2 DF, ONCE DAILY (QD)
     Route: 048
     Dates: start: 20121123
  4. *CARBAMAZEPINE [Suspect]
     Active Substance: CARBAMAZEPINE
     Indication: EPILEPSY
     Dosage: UNK UNK, 2X/DAY (BID)
     Route: 048
     Dates: start: 20121119

REACTIONS (1)
  - Sinus bradycardia [Recovered/Resolved]

NARRATIVE: CASE EVENT DATE: 20130225
